FAERS Safety Report 5350507-8 (Version None)
Quarter: 2007Q2

REPORT INFORMATION
  Report Type: 
  Country: None (occurrence: None)
  Receive Date: 20070605
  Receipt Date: 20070605
  Transmission Date: 20071010
  Serious: Yes (Hospitalization)
  Sender: FDA-Public Use
  Company Number: None

PATIENT
  Sex: Female
  Weight: 116.3 kg

DRUGS (9)
  1. CYTARABINE [Suspect]
     Dosage: 70 MG
  2. DAUNORUBICIN HCL [Suspect]
     Dosage: 110 MG
  3. METHOTREXATE [Suspect]
     Dosage: 15 MG
  4. PEG-L- ASPARAGINASE (K-H) [Suspect]
     Dosage: 5600 UNIT
  5. PREDNISONE TAB [Suspect]
     Dosage: 1950 MG
  6. VINCRISTINE SULFATE [Suspect]
     Dosage: 4 MG
  7. INSULIN [Concomitant]
  8. LAXATIVE [Concomitant]
  9. NEXIUM [Concomitant]

REACTIONS (29)
  - ACIDOSIS [None]
  - AMMONIA INCREASED [None]
  - ASCITES [None]
  - ASPERGILLOSIS [None]
  - BILIARY CIRRHOSIS [None]
  - BRAIN OEDEMA [None]
  - CAECITIS [None]
  - CEREBRAL DISORDER [None]
  - CHOLESTASIS [None]
  - COLITIS [None]
  - ESCHERICHIA INFECTION [None]
  - GASTROINTESTINAL NECROSIS [None]
  - HAEMODIALYSIS [None]
  - HEPATIC STEATOSIS [None]
  - ILEUS [None]
  - INTESTINAL PERFORATION [None]
  - LOSS OF CONSCIOUSNESS [None]
  - MULTI-ORGAN DISORDER [None]
  - NEUTROPENIA [None]
  - NO THERAPEUTIC RESPONSE [None]
  - PERICARDIAL EFFUSION [None]
  - PERITONITIS [None]
  - PLEURAL EFFUSION [None]
  - PNEUMOPERITONEUM [None]
  - PROCEDURAL HYPOTENSION [None]
  - RENAL FAILURE ACUTE [None]
  - RESPIRATORY DISTRESS [None]
  - SEPTIC SHOCK [None]
  - STAPHYLOCOCCAL INFECTION [None]
